FAERS Safety Report 8555446-7 (Version None)
Quarter: 2012Q3

REPORT INFORMATION
  Report Type: 
  Country: None (occurrence: None)
  Receive Date: 20120731
  Receipt Date: 20110825
  Transmission Date: 20120928
  Serious: Yes (Other)
  Sender: FDA-Public Use
  Company Number: US-ASTRAZENECA-2011SE12538

PATIENT
  Age: 604 Month
  Sex: Male

DRUGS (7)
  1. ZOLPIDEM [Concomitant]
     Route: 048
     Dates: start: 20090213
  2. SIMVASTATIN [Concomitant]
     Route: 048
     Dates: start: 20090213
  3. SEROQUEL [Suspect]
     Route: 048
     Dates: start: 20031201
  4. DIPHENHYDRAMINE HCL [Concomitant]
     Indication: INSOMNIA
     Route: 048
     Dates: start: 20090213
  5. ACETAZOLAMIDE [Concomitant]
     Route: 048
     Dates: start: 20090213
  6. SEROQUEL [Suspect]
     Route: 048
     Dates: start: 20090213
  7. LORAZEPAM [Concomitant]
     Dosage: TAKE 2 TABS EVERY MORNING AND 1 TAB EVERY AFTERNOON
     Route: 048
     Dates: start: 20090213

REACTIONS (3)
  - TYPE 2 DIABETES MELLITUS [None]
  - DIABETIC COMA [None]
  - PANCREATITIS [None]
